FAERS Safety Report 25387015 (Version 1)
Quarter: 2025Q2

REPORT INFORMATION
  Report Type: Report from Study
  Country: US (occurrence: US)
  Receive Date: 20250602
  Receipt Date: 20250602
  Transmission Date: 20250716
  Serious: Yes (Hospitalization)
  Sender: MYLAN
  Company Number: US-MYLANLABS-2025M1045402

PATIENT
  Sex: Female

DRUGS (4)
  1. GLATIRAMER ACETATE [Suspect]
     Active Substance: GLATIRAMER ACETATE
     Indication: Product used for unknown indication
  2. GLATIRAMER ACETATE [Suspect]
     Active Substance: GLATIRAMER ACETATE
     Route: 065
  3. GLATIRAMER ACETATE [Suspect]
     Active Substance: GLATIRAMER ACETATE
     Route: 065
  4. GLATIRAMER ACETATE [Suspect]
     Active Substance: GLATIRAMER ACETATE

REACTIONS (5)
  - Hypertension [Unknown]
  - Hypersensitivity [Unknown]
  - Dizziness [Unknown]
  - Dysstasia [Unknown]
  - Loss of personal independence in daily activities [Unknown]
